FAERS Safety Report 10423151 (Version 2)
Quarter: 2014Q4

REPORT INFORMATION
  Report Type: Spontaneous
  Country: US (occurrence: None)
  Receive Date: 20140722
  Receipt Date: 20141121
  Transmission Date: 20150528
  Serious: No
  Sender: FDA-Public Use
  Company Number: 163-10004-14060888

PATIENT
  Age: 55 Year
  Sex: Male

DRUGS (2)
  1. ENBREL (ETANERCEPT) (UNKNOWN) [Concomitant]
  2. OTEZLA [Suspect]
     Active Substance: APREMILAST
     Indication: PSORIATIC ARTHROPATHY
     Dosage: 20 MG, 2 IN 1 D, PO
     Route: 048
     Dates: start: 201404, end: 2014

REACTIONS (2)
  - Headache [None]
  - Nausea [None]

NARRATIVE: CASE EVENT DATE: 20140522
